FAERS Safety Report 4324521-5 (Version None)
Quarter: 2004Q1

REPORT INFORMATION
  Report Type: 
  Country: None (occurrence: None)
  Receive Date: 20040326
  Receipt Date: 20040226
  Transmission Date: 20041129
  Serious: No
  Sender: FDA-Public Use
  Company Number: US-GLAXOSMITHKLINE-A0500123A

PATIENT
  Age: 62 Year
  Sex: Male

DRUGS (7)
  1. ADVAIR DISKUS 100/50 [Suspect]
     Dosage: 1PUFF TWICE PER DAY
     Route: 055
     Dates: start: 20040220
  2. NIASPAN [Concomitant]
  3. PROTONIX [Concomitant]
  4. ZETIA [Concomitant]
  5. VIOXX [Concomitant]
  6. DIOVAN [Concomitant]
  7. TOPROL-XL [Concomitant]

REACTIONS (1)
  - DRUG INEFFECTIVE [None]
